FAERS Safety Report 8907335 (Version 1)
Quarter: 2012Q4

REPORT INFORMATION
  Report Type: 
  Country: CN (occurrence: CN)
  Receive Date: 20121114
  Receipt Date: 20121114
  Transmission Date: 20130627
  Serious: Yes (Death, Other)
  Sender: FDA-Public Use
  Company Number: PHHY2012CN104673

PATIENT
  Age: 62 Year
  Sex: Female

DRUGS (4)
  1. DEXAMETHASONE SANDOZ [Suspect]
     Indication: MULTIPLE MYELOMA
     Dosage: 20 mg per day (on day 1-5)
  2. CYCLOPHOSPHAMIDE [Suspect]
     Indication: MULTIPLE MYELOMA
     Dosage: 800 mg, UNK
  3. VINDESINE [Suspect]
     Indication: MULTIPLE MYELOMA
     Dosage: 3 mg, UNK
  4. PIRARUBICIN [Suspect]
     Indication: MULTIPLE MYELOMA
     Dosage: 20 mg per day

REACTIONS (8)
  - Multi-organ failure [Fatal]
  - Hepatic function abnormal [Unknown]
  - Renal impairment [Unknown]
  - Metabolic acidosis [Unknown]
  - Heart injury [Unknown]
  - Abdominal discomfort [Unknown]
  - Cardio-respiratory arrest [Unknown]
  - Toxicity to various agents [Unknown]
